FAERS Safety Report 6337992-X (Version None)
Quarter: 2009Q3

REPORT INFORMATION
  Report Type: 
  Country: None (occurrence: None)
  Receive Date: 20090902
  Receipt Date: 20090828
  Transmission Date: 20100115
  Serious: Yes (Other)
  Sender: FDA-Public Use
  Company Number: DE-BRISTOL-MYERS SQUIBB COMPANY-14760938

PATIENT
  Sex: Male

DRUGS (1)
  1. IRBESARTAN AND HYDROCHLOROTHIAZIDE [Suspect]
     Dosage: COAPROVEL TABS 150 MG HALF A TABLET
     Route: 048

REACTIONS (4)
  - ABDOMINAL PAIN [None]
  - BLOOD CREATINE PHOSPHOKINASE MB INCREASED [None]
  - CONSTIPATION [None]
  - PANCREATITIS [None]
